FAERS Safety Report 9285803 (Version 2)
Quarter: 2013Q2

REPORT INFORMATION
  Report Type: Spontaneous
  Country: US (occurrence: US)
  Receive Date: 20130513
  Receipt Date: 20130610
  Transmission Date: 20140414
  Serious: Yes (Death, Other)
  Sender: FDA-Public Use
  Company Number: US-PFIZER INC-2013142750

PATIENT
  Age: 29 Year
  Sex: Male

DRUGS (2)
  1. VFEND [Suspect]
     Indication: HISTOPLASMOSIS
     Dosage: 200 MG, 2X/DAY
     Dates: start: 20130321
  2. VFEND [Suspect]
     Indication: MEDIASTINITIS

REACTIONS (3)
  - Death [Fatal]
  - Tuberculosis [Unknown]
  - Meningitis [Unknown]
